FAERS Safety Report 25084170 (Version 3)
Quarter: 2025Q2

REPORT INFORMATION
  Report Type: Report from Study
  Country: CH (occurrence: CH)
  Receive Date: 20250317
  Receipt Date: 20250619
  Transmission Date: 20250716
  Serious: Yes (Hospitalization)
  Sender: ROCHE
  Company Number: CH-ROCHE-10000226119

PATIENT
  Age: 37 Year
  Sex: Male
  Weight: 74.5 kg

DRUGS (1)
  1. OCREVUS [Suspect]
     Active Substance: OCRELIZUMAB
     Indication: Multiple sclerosis
     Route: 058
     Dates: start: 20250220

REACTIONS (7)
  - Infection [Recovering/Resolving]
  - Leukocyturia [Recovered/Resolved]
  - Haematuria [Recovered/Resolved]
  - Pain in extremity [Recovered/Resolved]
  - Fasciitis [Recovered/Resolved]
  - Infection [Recovered/Resolved]
  - Injection site erythema [Recovered/Resolved]

NARRATIVE: CASE EVENT DATE: 20250220
